FAERS Safety Report 10143639 (Version 1)
Quarter: 2014Q2

REPORT INFORMATION
  Report Type: Spontaneous
  Country: US (occurrence: US)
  Receive Date: 20140430
  Receipt Date: 20140430
  Transmission Date: 20141212
  Serious: No
  Sender: FDA-Public Use
  Company Number: US-PFIZER INC-2014118211

PATIENT
  Sex: Male

DRUGS (1)
  1. CHANTIX [Suspect]
     Indication: SMOKING CESSATION THERAPY
     Dosage: UNK
     Dates: end: 20140426

REACTIONS (5)
  - Rash [Recovered/Resolved]
  - Rash [Unknown]
  - Sunburn [Unknown]
  - Erythema [Unknown]
  - Anxiety [Unknown]
